FAERS Safety Report 9465102 (Version 3)
Quarter: 2013Q4

REPORT INFORMATION
  Report Type: Spontaneous
  Country: US (occurrence: US)
  Receive Date: 20130819
  Receipt Date: 20131022
  Transmission Date: 20140711
  Serious: No
  Sender: FDA-Public Use
  Company Number: US-PFIZER INC-2013238319

PATIENT
  Age: 66 Year
  Sex: Female
  Weight: 86.17 kg

DRUGS (5)
  1. CADUET [Suspect]
     Indication: HYPERTENSION
     Dosage: [AMLODIPINE 5 MG]/[ATORVASTATIN 20 MG], DAILY
     Route: 048
     Dates: end: 20130814
  2. CADUET [Suspect]
     Indication: BLOOD CHOLESTEROL INCREASED
     Dosage: 1 DF, 1X/DAY (10/20 1 PO QD)
     Route: 048
  3. FLUOXETINE [Concomitant]
     Dosage: UNK
  4. LISINOPRIL [Concomitant]
     Dosage: UNK
  5. ASPIRIN [Concomitant]
     Dosage: UNK, AS NEEDED

REACTIONS (8)
  - Hypertension [Unknown]
  - Anxiety [Unknown]
  - Nervousness [Unknown]
  - Poor quality sleep [Unknown]
  - Body height decreased [Unknown]
  - Hearing impaired [Unknown]
  - Pain [Unknown]
  - Blood pressure inadequately controlled [Unknown]
